FAERS Safety Report 16019927 (Version 7)
Quarter: 2020Q1

REPORT INFORMATION
  Report Type: Report from Study
  Country: US (occurrence: US)
  Receive Date: 20190228
  Receipt Date: 20200314
  Transmission Date: 20200409
  Serious: Yes (Hospitalization)
  Sender: FDA-Public Use
  Company Number: US-ACTELION-A-US2018-180895

PATIENT
  Age: 72 Year
  Sex: Female

DRUGS (1)
  1. OPSUMIT [Suspect]
     Active Substance: MACITENTAN
     Indication: PULMONARY ARTERIAL HYPERTENSION
     Dosage: 10 MG, QD
     Route: 048
     Dates: start: 20181005

REACTIONS (13)
  - Sinusitis [Unknown]
  - Animal bite [Unknown]
  - Adverse event [Unknown]
  - Hypoacusis [Unknown]
  - Cystitis [Unknown]
  - Pneumonia [Unknown]
  - Nasopharyngitis [Unknown]
  - Nasal congestion [Unknown]
  - Urinary tract infection [Unknown]
  - Chronic kidney disease [Unknown]
  - Bacterial infection [Unknown]
  - Sinus congestion [Unknown]
  - Sepsis [Unknown]

NARRATIVE: CASE EVENT DATE: 20181017
